FAERS Safety Report 7427657-5 (Version None)
Quarter: 2011Q2

REPORT INFORMATION
  Report Type: 
  Country: None (occurrence: None)
  Receive Date: 20110408
  Receipt Date: 20110328
  Transmission Date: 20111010
  Serious: Yes (Life-Threatening)
  Sender: FDA-Public Use
  Company Number: 029024

PATIENT
  Sex: Male

DRUGS (15)
  1. TEGRETOL [Concomitant]
  2. EXCEGRAN [Concomitant]
  3. LASIX [Concomitant]
  4. CEROCAL [Concomitant]
  5. GASTER [Concomitant]
  6. GABAPENTIN [Concomitant]
  7. TOPIRAMATE [Suspect]
     Indication: EPILEPSY
     Dosage: (200 MG ORAL) ; (300 MG ORAL)
     Route: 048
     Dates: start: 20101009
  8. TOPIRAMATE [Suspect]
     Indication: EPILEPSY
     Dosage: (200 MG ORAL) ; (300 MG ORAL)
     Route: 048
     Dates: start: 20101001, end: 20101008
  9. KOLANTYL [Concomitant]
  10. MYSLEE [Concomitant]
  11. RISPERDAL [Concomitant]
  12. PHENOBAL [Concomitant]
  13. ASPIRIN [Concomitant]
  14. WARFARIN [Concomitant]
  15. KEPPRA [Suspect]
     Indication: EPILEPSY
     Dosage: (500 MG BID ORAL)
     Route: 048
     Dates: start: 20110118, end: 20110226

REACTIONS (11)
  - SOMNOLENCE [None]
  - DEPRESSIVE SYMPTOM [None]
  - ABNORMAL BEHAVIOUR [None]
  - GRAND MAL CONVULSION [None]
  - PERSECUTORY DELUSION [None]
  - PSYCHOTIC DISORDER DUE TO A GENERAL MEDICAL CONDITION [None]
  - SUICIDE ATTEMPT [None]
  - ANXIETY [None]
  - SCHIZOPHRENIA [None]
  - INCOHERENT [None]
  - HALLUCINATION, AUDITORY [None]
